FAERS Safety Report 4647380-X (Version None)
Quarter: 2005Q2

REPORT INFORMATION
  Report Type: 
  Country: None (occurrence: None)
  Receive Date: 20050428
  Receipt Date: 20050418
  Transmission Date: 20051028
  Serious: Yes (Hospitalization)
  Sender: FDA-Public Use
  Company Number: GB-JNJFOC-20050404173

PATIENT
  Age: 70 Year
  Sex: Female

DRUGS (8)
  1. REMICADE [Suspect]
     Indication: RHEUMATOID ARTHRITIS
     Route: 042
  2. RANITIDINE [Concomitant]
  3. METHOTREXATE [Concomitant]
  4. FOLIC ACID [Concomitant]
  5. FRUSEMIDE [Concomitant]
  6. ALENDRONATE SODIUM [Concomitant]
  7. PREDNISOLONE [Concomitant]
  8. FLUCONAZOLE [Concomitant]

REACTIONS (1)
  - APPENDICITIS [None]
